FAERS Safety Report 4652355-0 (Version None)
Quarter: 2005Q2

REPORT INFORMATION
  Report Type: 
  Country: None (occurrence: None)
  Receive Date: 20050504
  Receipt Date: 20050425
  Transmission Date: 20051028
  Serious: Yes (Death, Hospitalization)
  Sender: FDA-Public Use
  Company Number: FI-GLAXOSMITHKLINE-B0379732A

PATIENT
  Weight: 72.8 kg

DRUGS (17)
  1. ZINACEF [Suspect]
     Indication: ERYSIPELAS
     Dosage: 1.5G THREE TIMES PER DAY
     Route: 042
     Dates: start: 20050104, end: 20050115
  2. CEPHALEXIN MONOHYDRATE [Concomitant]
     Dosage: 500MG THREE TIMES PER DAY
     Dates: start: 20050115, end: 20050125
  3. METRONIDAZOLE [Concomitant]
     Dosage: 500MG THREE TIMES PER DAY
     Dates: start: 20050115, end: 20050125
  4. PANTOPRAZOLE SODIUM [Concomitant]
     Dosage: 40MG PER DAY
  5. PREDNISOLONE [Concomitant]
     Dosage: 2.5MG PER DAY
  6. PREDNISOLONE [Concomitant]
     Dosage: 20MG PER DAY
  7. CALCITONIN [Concomitant]
     Dosage: 200IU PER DAY
  8. METOCLOPRAMIDE [Concomitant]
     Dosage: 10MG TWICE PER DAY
  9. ENOXAPARIN SODIUM [Concomitant]
     Dosage: 20MG PER DAY
     Route: 058
     Dates: start: 20050104, end: 20050107
  10. GAVISCON [Concomitant]
     Dosage: 10ML PER DAY
  11. FUROSEMIDE [Concomitant]
     Dosage: 40MG PER DAY
  12. BISOPROLOL FUMARATE [Concomitant]
     Dosage: 10MG PER DAY
  13. RAMIPRIL [Concomitant]
     Dosage: 5MG PER DAY
  14. PENTOXYVERINE [Concomitant]
  15. ACETAMINOPHEN [Concomitant]
  16. HYDROXYZINE [Concomitant]
     Dosage: 25MG PER DAY
  17. WARFARIN SODIUM [Concomitant]
     Dates: start: 20050104, end: 20050107

REACTIONS (7)
  - ACNE [None]
  - DEATH [None]
  - ERYTHEMA [None]
  - SKIN DISORDER [None]
  - SKIN IRRITATION [None]
  - TOXIC EPIDERMAL NECROLYSIS [None]
  - WRONG DRUG ADMINISTERED [None]
